FAERS Safety Report 21596872 (Version 2)
Quarter: 2023Q1

REPORT INFORMATION
  Report Type: Spontaneous
  Country: ES (occurrence: ES)
  Receive Date: 20221115
  Receipt Date: 20230103
  Transmission Date: 20230418
  Serious: Yes (Other)
  Sender: FDA-Public Use
  Company Number: ES-SAMSUNG BIOEPIS-SB-2022-23280

PATIENT
  Age: 38 Year
  Sex: Male

DRUGS (3)
  1. ADALIMUMAB [Suspect]
     Active Substance: ADALIMUMAB
     Indication: Iridocyclitis
     Dosage: 40 MILLIGRAM, BIWEEKLY
     Route: 065
  2. ADALIMUMAB [Suspect]
     Active Substance: ADALIMUMAB
     Indication: Ankylosing spondylitis
  3. METHOTREXATE [Suspect]
     Active Substance: METHOTREXATE
     Indication: Ankylosing spondylitis
     Dosage: 12.5 MILLIGRAM, QW
     Route: 065

REACTIONS (4)
  - Tuberculosis [Unknown]
  - Tuberculosis of eye [Recovered/Resolved]
  - Uveitis [Unknown]
  - Chorioretinal scar [Unknown]
